FAERS Safety Report 10197432 (Version 1)
Quarter: 2014Q2

REPORT INFORMATION
  Report Type: Spontaneous
  Country: US (occurrence: None)
  Receive Date: 20140523
  Receipt Date: 20140523
  Transmission Date: 20141212
  Serious: Yes (Other)
  Sender: FDA-Public Use
  Company Number: None

PATIENT
  Age: 35 Year
  Sex: Female
  Weight: 50.8 kg

DRUGS (1)
  1. LEVOFLOXACIN 750MG [Suspect]
     Indication: PNEUMONIA
     Dosage: 1 PILL; ONCE DAILY; TAKEN BY MOUTH
     Route: 048
     Dates: start: 20140519, end: 20140521

REACTIONS (4)
  - Muscular weakness [None]
  - Arthralgia [None]
  - Musculoskeletal stiffness [None]
  - Arthritis [None]
